FAERS Safety Report 7506681-8 (Version None)
Quarter: 2011Q2

REPORT INFORMATION
  Report Type: 
  Country: None (occurrence: None)
  Receive Date: 20110526
  Receipt Date: 20110520
  Transmission Date: 20111010
  Serious: Yes (Hospitalization)
  Sender: FDA-Public Use
  Company Number: FR-SANOFI-AVENTIS-2011SA028298

PATIENT
  Age: 70 Year
  Sex: Female
  Weight: 52 kg

DRUGS (7)
  1. XENETIX [Suspect]
     Indication: ARTERIOGRAM CORONARY
     Route: 042
     Dates: start: 20101203, end: 20101203
  2. ATORVASTATIN [Concomitant]
     Dates: start: 20090101, end: 20110301
  3. BONIVA [Concomitant]
     Dates: end: 20110301
  4. LANZOR [Concomitant]
     Dates: start: 20100101, end: 20110301
  5. PLAVIX [Suspect]
     Route: 048
     Dates: start: 20101102, end: 20101203
  6. DELURSAN [Concomitant]
     Dates: start: 20090101
  7. IBUPROFEN [Suspect]
     Indication: PAIN
     Route: 048
     Dates: start: 20080101, end: 20110301

REACTIONS (4)
  - COUGH [None]
  - PYREXIA [None]
  - EOSINOPHILIA [None]
  - ASTHENIA [None]
